FAERS Safety Report 16994790 (Version 5)
Quarter: 2022Q1

REPORT INFORMATION
  Report Type: Spontaneous
  Country: DE (occurrence: DE)
  Receive Date: 20191105
  Receipt Date: 20220225
  Transmission Date: 20220424
  Serious: Yes (Other)
  Sender: FDA-Public Use
  Company Number: DE-MYLANLABS-2019M1104208

PATIENT
  Sex: Female

DRUGS (33)
  1. VALSARTAN [Suspect]
     Active Substance: VALSARTAN
     Indication: Product used for unknown indication
     Dosage: UNK
     Dates: start: 20140714, end: 201410
  2. VALSARTAN [Suspect]
     Active Substance: VALSARTAN
     Dosage: UNK
     Dates: start: 20130802, end: 201404
  3. VALSARTAN [Suspect]
     Active Substance: VALSARTAN
     Dosage: UNK
     Dates: start: 20121105, end: 201303
  4. VALSARTAN [Suspect]
     Active Substance: VALSARTAN
     Indication: Product used for unknown indication
     Dosage: 1-0-0
     Dates: start: 2018
  5. VALSARTAN [Suspect]
     Active Substance: VALSARTAN
     Dosage: UNK
     Dates: start: 20140606, end: 201407
  6. VALSARTAN [Suspect]
     Active Substance: VALSARTAN
     Indication: Product used for unknown indication
     Dosage: 0-0-1
     Dates: start: 20130409, end: 201306
  7. VALSARTAN [Suspect]
     Active Substance: VALSARTAN
     Dosage: 0-0-1
     Dates: start: 2018
  8. VALSARTAN [Suspect]
     Active Substance: VALSARTAN
     Indication: Product used for unknown indication
     Dosage: UNK
     Dates: start: 20161109
  9. VALSARTAN [Suspect]
     Active Substance: VALSARTAN
     Indication: Product used for unknown indication
     Dosage: UNK
     Dates: start: 20160926, end: 201611
  10. VALSARTAN [Suspect]
     Active Substance: VALSARTAN
     Indication: Product used for unknown indication
     Dosage: UNK
     Dates: start: 20141014, end: 201609
  11. VALSARTAN [Suspect]
     Active Substance: VALSARTAN
     Indication: Product used for unknown indication
     Dosage: UNK
     Dates: start: 20130802, end: 201404
  12. VALSARTAN [Suspect]
     Active Substance: VALSARTAN
     Dosage: UNK
     Dates: start: 20120109, end: 201208
  13. VALSARTAN [Suspect]
     Active Substance: VALSARTAN
     Indication: Product used for unknown indication
     Dosage: 160 MILLIGRAM, AM
     Dates: start: 2012, end: 2018
  14. VALSARTAN [Suspect]
     Active Substance: VALSARTAN
     Indication: Product used for unknown indication
     Dosage: UNK
     Dates: start: 20121004, end: 201211
  15. VALSARTAN [Suspect]
     Active Substance: VALSARTAN
     Dosage: UNK
     Dates: end: 201201
  16. VALSARTAN [Suspect]
     Active Substance: VALSARTAN
     Indication: Product used for unknown indication
     Dosage: UNK
     Dates: start: 20120109, end: 201208
  17. METOPROLOL SUCCINATE [Concomitant]
     Active Substance: METOPROLOL SUCCINATE
     Dosage: UNK (1-0-1)
     Dates: start: 2018
  18. EUTHYROX [Concomitant]
     Active Substance: LEVOTHYROXINE SODIUM
     Dosage: UNK (1-0-0)
     Dates: start: 2018
  19. MOXONIDINE [Concomitant]
     Active Substance: MOXONIDINE
     Dosage: UNK
  20. PANTOPRAZOLE SODIUM [Concomitant]
     Active Substance: PANTOPRAZOLE SODIUM
     Dosage: UNK
  21. NALOXONE HYDROCHLORIDE\TILIDINE HYDROCHLORIDE [Concomitant]
     Active Substance: NALOXONE HYDROCHLORIDE\TILIDINE HYDROCHLORIDE
     Dosage: UNK
  22. ANGELIQ [Concomitant]
     Active Substance: DROSPIRENONE\ESTRADIOL
     Dosage: UNK
  23. IBUPROFEN [Concomitant]
     Active Substance: IBUPROFEN
     Dosage: UNK
  24. IBUFLAM AKUT [Concomitant]
     Dosage: UNK
  25. ALPICORT [Concomitant]
     Dosage: UNK
  26. ALLANTOIN\AMINACRINE HYDROCHLORIDE\SULFANILAMIDE [Concomitant]
     Active Substance: ALLANTOIN\AMINACRINE HYDROCHLORIDE\SULFANILAMIDE
     Dosage: UNK
  27. Paracodin n [Concomitant]
     Dosage: UNK
  28. OMEPRAZOLE [Concomitant]
     Active Substance: OMEPRAZOLE
     Dosage: UNK
  29. PREDNISOLONE [Concomitant]
     Active Substance: PREDNISOLONE
     Dosage: UNK
  30. TORSEMIDE [Concomitant]
     Active Substance: TORSEMIDE
     Dosage: UNK
  31. MOXONIDINA [Concomitant]
     Dosage: UNK(0-0-1)
     Dates: start: 2018
  32. ASPIRIN [Concomitant]
     Active Substance: ASPIRIN
     Dosage: UNK, 1-0-0
     Dates: start: 2018
  33. DICLOFENAC RATIO [Concomitant]
     Dosage: 75 MILLIGRAM

REACTIONS (7)
  - Mental impairment [Not Recovered/Not Resolved]
  - Disease susceptibility [Unknown]
  - Impaired quality of life [Not Recovered/Not Resolved]
  - Exposure to toxic agent [Unknown]
  - Personality change [Unknown]
  - Anxiety [Unknown]
  - Sleep disorder [Unknown]
